FAERS Safety Report 22246993 (Version 1)
Quarter: 2023Q2

REPORT INFORMATION
  Report Type: Report from Study
  Country: ES (occurrence: ES)
  Receive Date: 20230424
  Receipt Date: 20230424
  Transmission Date: 20230722
  Serious: Yes (Hospitalization)
  Sender: FDA-Public Use
  Company Number: None

PATIENT
  Age: 28 Year
  Sex: Male

DRUGS (4)
  1. OLANZAPINE [Interacting]
     Active Substance: OLANZAPINE
     Indication: Autism spectrum disorder
     Dosage: OLANZAPINA (2770A)
     Dates: start: 20220719, end: 20221116
  2. RISPERIDONE [Interacting]
     Active Substance: RISPERIDONE
     Indication: Autism spectrum disorder
     Dosage: RISPERIDONA (7201A)
     Dates: start: 20220719, end: 20221116
  3. RIVOTRIL [Concomitant]
     Active Substance: CLONAZEPAM
     Indication: Autism spectrum disorder
     Dosage: 60 TABLETS
     Dates: start: 20220719, end: 20221116
  4. SERTRALINE [Concomitant]
     Active Substance: SERTRALINE HYDROCHLORIDE
     Indication: Autism spectrum disorder
     Dosage: SERTRALINA (2537A)
     Dates: start: 20220719, end: 20221116

REACTIONS (3)
  - Vomiting [Recovered/Resolved]
  - Intestinal pseudo-obstruction [Recovered/Resolved]
  - Drug interaction [Unknown]

NARRATIVE: CASE EVENT DATE: 20221111
